FAERS Safety Report 20666245 (Version 1)
Quarter: 2022Q2

REPORT INFORMATION
  Report Type: Spontaneous
  Country: US (occurrence: US)
  Receive Date: 20220403
  Receipt Date: 20220403
  Transmission Date: 20220721
  Serious: Yes (Other)
  Sender: FDA-Public Use
  Company Number: US-SA-SAC20220331000870

PATIENT
  Age: 52 Year
  Sex: Female

DRUGS (14)
  1. DUPIXENT [Suspect]
     Active Substance: DUPILUMAB
     Indication: Asthma
     Dosage: 300 MG, QOW
     Route: 058
     Dates: start: 20211018, end: 20220228
  2. VITAMIN D3 [Concomitant]
     Active Substance: CHOLECALCIFEROL
     Dosage: UNK
  3. MONTELUKAST SODIUM [Concomitant]
     Active Substance: MONTELUKAST SODIUM
  4. MELOXICAM [Concomitant]
     Active Substance: MELOXICAM
     Dosage: UNK
  5. MELATONIN [Concomitant]
     Active Substance: MELATONIN
  6. MAGNESIUM CITRATE [Concomitant]
     Active Substance: MAGNESIUM CITRATE
  7. FLUTICASONE PROPIONATE [Concomitant]
     Active Substance: FLUTICASONE PROPIONATE
     Dosage: 20MG
  8. ESCITALOPRAM OXALATE [Concomitant]
     Active Substance: ESCITALOPRAM OXALATE
  9. CYCLOBENZAPRINE HYDROCHLORIDE [Concomitant]
     Active Substance: CYCLOBENZAPRINE HYDROCHLORIDE
  10. BUPROPION [Concomitant]
     Active Substance: BUPROPION
     Dosage: UNK, QD
  11. AZELASTINE HYDROCHLORIDE\FLUTICASONE PROPIONATE [Concomitant]
     Active Substance: AZELASTINE HYDROCHLORIDE\FLUTICASONE PROPIONATE
     Dosage: 05MG
  12. VITAMIN D2 [Concomitant]
     Active Substance: ERGOCALCIFEROL
  13. ALPRAZOLAM [Concomitant]
     Active Substance: ALPRAZOLAM
  14. SUPER B COMPLEX [VITAMIN B COMPLEX] [Concomitant]

REACTIONS (9)
  - Diverticulitis [Unknown]
  - Oropharyngeal pain [Unknown]
  - Pyrexia [Unknown]
  - Eye pruritus [Unknown]
  - Sinus headache [Unknown]
  - Lower respiratory tract congestion [Unknown]
  - Malaise [Unknown]
  - Fatigue [Unknown]
  - Therapy cessation [Unknown]

NARRATIVE: CASE EVENT DATE: 20220228
